FAERS Safety Report 22314198 (Version 1)
Quarter: 2023Q2

REPORT INFORMATION
  Report Type: Spontaneous
  Country: US (occurrence: US)
  Receive Date: 20230512
  Receipt Date: 20230512
  Transmission Date: 20230722
  Serious: No
  Sender: FDA-Public Use
  Company Number: US-GSK-US2023063886

PATIENT
  Age: 72 Year
  Sex: Male

DRUGS (1)
  1. ANORO ELLIPTA [Suspect]
     Active Substance: UMECLIDINIUM BROMIDE\VILANTEROL TRIFENATATE
     Indication: Chronic obstructive pulmonary disease
     Dosage: 1 PUFF(S), QD (62.5-25 ORAL INHUSE )
     Route: 048
     Dates: start: 201601

REACTIONS (4)
  - Laryngitis [Unknown]
  - Nasopharyngitis [Unknown]
  - Drainage [Unknown]
  - Sinusitis [Unknown]

NARRATIVE: CASE EVENT DATE: 20230429
